FAERS Safety Report 6787339-X (Version None)
Quarter: 2010Q2

REPORT INFORMATION
  Report Type: 
  Country: None (occurrence: None)
  Receive Date: 20100623
  Receipt Date: 20060329
  Transmission Date: 20101027
  Serious: No
  Sender: FDA-Public Use
  Company Number: US-PFIZER INC-2006044963

PATIENT
  Sex: Female
  Weight: 68.04 kg

DRUGS (4)
  1. ACCURETIC [Suspect]
     Indication: HYPERTENSION
     Dosage: 20/12.5 MG
     Route: 048
  2. NORVASC [Suspect]
     Indication: HYPERTENSION
     Route: 048
  3. ZOLOFT [Suspect]
     Indication: PANIC ATTACK
     Route: 048
     Dates: start: 20060326
  4. ZOLOFT [Suspect]
     Indication: ANXIETY

REACTIONS (7)
  - DECREASED APPETITE [None]
  - DRY MOUTH [None]
  - HEADACHE [None]
  - MENOPAUSAL SYMPTOMS [None]
  - MIGRAINE [None]
  - NAUSEA [None]
  - TONGUE DISORDER [None]
